FAERS Safety Report 5395446-1 (Version None)
Quarter: 2007Q3

REPORT INFORMATION
  Report Type: 
  Country: None (occurrence: None)
  Receive Date: 20070724
  Receipt Date: 20070717
  Transmission Date: 20080115
  Serious: Yes (Death, Hospitalization)
  Sender: FDA-Public Use
  Company Number: A0664577A

PATIENT
  Age: 68 Year
  Sex: Male

DRUGS (8)
  1. COREG [Suspect]
     Dosage: 25MG TWICE PER DAY
     Route: 048
     Dates: start: 20060101
  2. LASIX [Concomitant]
  3. COUMADIN [Concomitant]
  4. NOVOLIN 70/30 [Concomitant]
  5. DIOVAN [Concomitant]
  6. ZANTAC 150 [Concomitant]
  7. TRICOR [Concomitant]
  8. CADUET [Concomitant]

REACTIONS (3)
  - CARDIAC FAILURE CONGESTIVE [None]
  - FLUID RETENTION [None]
  - SEPTIC SHOCK [None]
